FAERS Safety Report 10192230 (Version 1)
Quarter: 2014Q2

REPORT INFORMATION
  Report Type: Spontaneous
  Country: US (occurrence: US)
  Receive Date: 20140523
  Receipt Date: 20140523
  Transmission Date: 20141212
  Serious: No
  Sender: FDA-Public Use
  Company Number: US-AMARIN PHARMA, INC.-2014AMR000019

PATIENT
  Sex: Female
  Weight: 81.72 kg

DRUGS (5)
  1. VASCEPA [Suspect]
     Indication: BLOOD CHOLESTEROL ABNORMAL
     Route: 065
     Dates: start: 201309, end: 201311
  2. VASCEPA [Suspect]
     Route: 065
     Dates: start: 201311
  3. ANTIHYPERTENSIVES [Concomitant]
     Indication: BLOOD PRESSURE ABNORMAL
  4. VITAMINS NOS [Concomitant]
     Indication: PRODUCT USED FOR UNKNOWN INDICATION
  5. MEDICATION FOR HIGH CHOLESTEROL [Concomitant]
     Indication: BLOOD CHOLESTEROL ABNORMAL

REACTIONS (1)
  - Pruritus [Recovered/Resolved]
